FAERS Safety Report 9459202 (Version 1)
Quarter: 2013Q3

REPORT INFORMATION
  Report Type: Spontaneous
  Country: SG (occurrence: SG)
  Receive Date: 20130814
  Receipt Date: 20130814
  Transmission Date: 20140515
  Serious: Yes (Hospitalization)
  Sender: FDA-Public Use
  Company Number: SG-PFIZER INC-2013229993

PATIENT
  Age: 19 Year
  Sex: Female
  Weight: 45 kg

DRUGS (3)
  1. CLINDAMYCIN HCL [Suspect]
     Dosage: 450 MG, 4X/DAY
     Route: 048
     Dates: start: 20130628, end: 20130628
  2. NAPROXEN [Suspect]
     Dosage: 550 MG, 2X/DAY
     Route: 048
     Dates: start: 20130627, end: 20130628
  3. OMEPRAZOLE [Concomitant]
     Dosage: 20 MG, 2X/DAY
     Route: 048
     Dates: start: 20130627, end: 20130629

REACTIONS (1)
  - Dyspnoea [Recovered/Resolved]
